FAERS Safety Report 23473524 (Version 1)
Quarter: 2024Q1

REPORT INFORMATION
  Report Type: Report from Study
  Country: IT (occurrence: IT)
  Receive Date: 20240203
  Receipt Date: 20240203
  Transmission Date: 20240410
  Serious: Yes (Other)
  Sender: FDA-Public Use
  Company Number: IT-EMA-DD-20240104-7482647-114433

PATIENT
  Sex: Male

DRUGS (8)
  1. LACOSAMIDE [Suspect]
     Active Substance: LACOSAMIDE
     Indication: Epilepsy
  2. LEVETIRACETAM [Suspect]
     Active Substance: LEVETIRACETAM
     Indication: Epilepsy
  3. TOPIRAMATE [Suspect]
     Active Substance: TOPIRAMATE
     Indication: Epilepsy
  4. PREDNISONE [Suspect]
     Active Substance: PREDNISONE
     Indication: Epilepsy
  5. VIGABATRIN [Suspect]
     Active Substance: VIGABATRIN
     Indication: Epilepsy
  6. TRAMETINIB [Suspect]
     Active Substance: TRAMETINIB
     Indication: Epilepsy
     Dosage: 0.025 MILLIGRAM PER KILOGRAM
  7. VALPROIC ACID [Suspect]
     Active Substance: VALPROIC ACID
     Indication: Epilepsy
  8. CLOBAZAM [Suspect]
     Active Substance: CLOBAZAM
     Indication: Epilepsy

REACTIONS (4)
  - Hypovolaemic shock [Unknown]
  - Colitis [Unknown]
  - Therapy partial responder [Unknown]
  - Gastroenteritis viral [Unknown]
